FAERS Safety Report 10992401 (Version 1)
Quarter: 2015Q2

REPORT INFORMATION
  Report Type: Spontaneous
  Country: BR (occurrence: BR)
  Receive Date: 20150406
  Receipt Date: 20150406
  Transmission Date: 20150821
  Serious: Yes (Other)
  Sender: FDA-Public Use
  Company Number: PHHY2015BR033503

PATIENT
  Age: 59 Year
  Sex: Male
  Weight: 85 kg

DRUGS (1)
  1. COMTAN [Suspect]
     Active Substance: ENTACAPONE
     Indication: PARKINSON^S DISEASE
     Route: 048

REACTIONS (9)
  - Delirium [Not Recovered/Not Resolved]
  - Dysphonia [Unknown]
  - Gait disturbance [Not Recovered/Not Resolved]
  - Eye disorder [Not Recovered/Not Resolved]
  - Incoherent [Not Recovered/Not Resolved]
  - Parkinsonism [Unknown]
  - Speech disorder [Not Recovered/Not Resolved]
  - Delusion [Unknown]
  - Treatment noncompliance [None]

NARRATIVE: CASE EVENT DATE: 201411
